FAERS Safety Report 9670748 (Version 1)
Quarter: 2013Q4

REPORT INFORMATION
  Report Type: Spontaneous
  Country: US (occurrence: US)
  Receive Date: 20131106
  Receipt Date: 20131106
  Transmission Date: 20140711
  Serious: No
  Sender: FDA-Public Use
  Company Number: US-ENDO PHARMACEUTICALS INC.-HYDR20110029

PATIENT
  Sex: Male

DRUGS (2)
  1. HYDROCORTISONE TABLETS [Suspect]
     Indication: FATIGUE
     Route: 048
     Dates: start: 201104, end: 2011
  2. HYDROCORTISONE TABLETS [Suspect]
     Route: 048
     Dates: start: 2011, end: 201110

REACTIONS (5)
  - Fatigue [Not Recovered/Not Resolved]
  - Decreased appetite [Not Recovered/Not Resolved]
  - Weight decreased [Not Recovered/Not Resolved]
  - Abdominal discomfort [Not Recovered/Not Resolved]
  - Drug ineffective [Not Recovered/Not Resolved]
